FAERS Safety Report 15510826 (Version 1)
Quarter: 2018Q4

REPORT INFORMATION
  Report Type: Spontaneous
  Country: US (occurrence: US)
  Receive Date: 20181016
  Receipt Date: 20181016
  Transmission Date: 20190205
  Serious: Yes (Other)
  Sender: FDA-Public Use
  Company Number: US-LPDUSPRD-20181893

PATIENT
  Sex: Female

DRUGS (1)
  1. VENOFER [Suspect]
     Active Substance: IRON SUCROSE
     Dosage: UNKNOWN
     Route: 065

REACTIONS (11)
  - Insomnia [Unknown]
  - Skin fissures [Unknown]
  - Ill-defined disorder [Unknown]
  - Transferrin saturation decreased [Unknown]
  - Cyanosis [Unknown]
  - Dry skin [Unknown]
  - Alopecia [Unknown]
  - Dyspnoea [Unknown]
  - Pain in extremity [Unknown]
  - Breast cancer [Unknown]
  - Fatigue [Unknown]
